FAERS Safety Report 12531874 (Version 1)
Quarter: 2016Q3

REPORT INFORMATION
  Report Type: Spontaneous
  Country: SG (occurrence: SG)
  Receive Date: 20160706
  Receipt Date: 20160706
  Transmission Date: 20161109
  Serious: Yes (Other)
  Sender: FDA-Public Use
  Company Number: SG-HQ SPECIALTY-SG-2016INT000437

PATIENT
  Age: 62 Year
  Sex: Female

DRUGS (2)
  1. IFOSFAMIDE. [Suspect]
     Active Substance: IFOSFAMIDE
     Indication: MUELLER^S MIXED TUMOUR
     Dosage: UNK
  2. CISPLATIN. [Suspect]
     Active Substance: CISPLATIN
     Indication: MUELLER^S MIXED TUMOUR
     Dosage: UNK

REACTIONS (1)
  - Hallucination [Unknown]
